FAERS Safety Report 4622343-9 (Version None)
Quarter: 2005Q1

REPORT INFORMATION
  Report Type: 
  Country: None (occurrence: None)
  Receive Date: 20050330
  Receipt Date: 20050321
  Transmission Date: 20050727
  Serious: Yes (Other)
  Sender: FDA-Public Use
  Company Number: 200512581GDDC

PATIENT
  Age: 36 Year
  Sex: Male
  Weight: 75 kg

DRUGS (2)
  1. TELFAST [Suspect]
     Indication: RASH PRURITIC
     Route: 048
     Dates: start: 20050211, end: 20050313
  2. PERMETHRIN [Concomitant]
     Indication: ACARODERMATITIS
     Route: 061
     Dates: start: 20050311

REACTIONS (2)
  - ARTHRALGIA [None]
  - MYALGIA [None]
